FAERS Safety Report 6540185-4 (Version None)
Quarter: 2010Q1

REPORT INFORMATION
  Report Type: 
  Country: None (occurrence: None)
  Receive Date: 20100112
  Receipt Date: 20091229
  Transmission Date: 20100710
  Serious: Yes (Death, Hospitalization)
  Sender: FDA-Public Use
  Company Number: 469834

PATIENT
  Age: 43 Year
  Sex: Male

DRUGS (15)
  1. CARBOPLATIN [Suspect]
     Dosage: 405 MG, INTRAVENOUS
     Route: 042
     Dates: start: 20091013, end: 20091013
  2. PROGRAF [Suspect]
     Dosage: 1 MG
     Dates: start: 20061001
  3. CERTICAN [Suspect]
     Dosage: 1 MG
     Dates: start: 20090827
  4. (SOLUPRED /00016209/) [Suspect]
     Dosage: 20 MG
     Dates: start: 20090815
  5. PACLITAXEL [Suspect]
     Dosage: 158 MG, INTRAVENOUS
     Route: 042
     Dates: start: 20091013, end: 20091013
  6. (ZEFFIX) [Concomitant]
  7. ADEFOVIR DIPIVOXIL KIT [Concomitant]
  8. LYRICA [Concomitant]
  9. ATARAX [Concomitant]
  10. (VITAMIN D3) [Concomitant]
  11. (IMOVANE) [Concomitant]
  12. (AVLOCARDYL /00030001/) [Concomitant]
  13. (APROVEL) [Concomitant]
  14. (INEXIUM /01479302/) [Concomitant]
  15. (CONTRAMAL) [Concomitant]

REACTIONS (2)
  - CYTOMEGALOVIRUS INFECTION [None]
  - PNEUMOCYSTIS JIROVECI PNEUMONIA [None]
